FAERS Safety Report 11166874 (Version 1)
Quarter: 2015Q2

REPORT INFORMATION
  Report Type: Spontaneous
  Country: BR (occurrence: BR)
  Receive Date: 20150605
  Receipt Date: 20150605
  Transmission Date: 20150821
  Serious: Yes (Other)
  Sender: FDA-Public Use
  Company Number: BR-ROCHE-1587541

PATIENT
  Sex: Female
  Weight: 90 kg

DRUGS (3)
  1. RIVOTRIL [Suspect]
     Active Substance: CLONAZEPAM
     Indication: INSOMNIA
     Dosage: HALF TABLET FOR 2 DAYS.
     Route: 065
  2. RIVOTRIL [Suspect]
     Active Substance: CLONAZEPAM
     Indication: ANXIETY
     Dosage: 1 TABLET/MORNING; 1 TABLET/EVENING
     Route: 065
  3. SYMBICORT [Concomitant]
     Active Substance: BUDESONIDE\FORMOTEROL FUMARATE DIHYDRATE

REACTIONS (17)
  - Fear [Unknown]
  - Libido decreased [Not Recovered/Not Resolved]
  - Gastric disorder [Not Recovered/Not Resolved]
  - Product packaging quantity issue [Unknown]
  - Joint injury [Recovered/Resolved]
  - Malaise [Unknown]
  - Blood pressure increased [Unknown]
  - Amnesia [Not Recovered/Not Resolved]
  - Feeling jittery [Recovered/Resolved]
  - Somnolence [Unknown]
  - Dizziness [Unknown]
  - Drug dependence [Unknown]
  - Fall [Unknown]
  - Hypertension [Not Recovered/Not Resolved]
  - Stress [Unknown]
  - Tachycardia [Unknown]
  - Arthralgia [Not Recovered/Not Resolved]

NARRATIVE: CASE EVENT DATE: 2005
